FAERS Safety Report 23030925 (Version 2)
Quarter: 2023Q4

REPORT INFORMATION
  Report Type: Report from Study
  Country: US (occurrence: US)
  Receive Date: 20231005
  Receipt Date: 20231011
  Transmission Date: 20240110
  Serious: Yes (Other)
  Sender: FDA-Public Use
  Company Number: US-UCBSA-2023026019

PATIENT
  Sex: Female

DRUGS (1)
  1. LEVETIRACETAM [Suspect]
     Active Substance: LEVETIRACETAM
     Indication: Seizure
     Dosage: 500 MILLIGRAM, 2X/DAY (BID)(500MG-2 TABS)

REACTIONS (4)
  - Seizure [Not Recovered/Not Resolved]
  - Vitamin B complex deficiency [Recovering/Resolving]
  - Fatigue [Not Recovered/Not Resolved]
  - Hypophagia [Not Recovered/Not Resolved]

NARRATIVE: CASE EVENT DATE: 20220101
